FAERS Safety Report 16176473 (Version 4)
Quarter: 2019Q3

REPORT INFORMATION
  Report Type: Spontaneous
  Country: JP (occurrence: JP)
  Receive Date: 20190409
  Receipt Date: 20190805
  Transmission Date: 20191004
  Serious: Yes (Hospitalization)
  Sender: FDA-Public Use
  Company Number: JP-ASTRAZENECA-2019SE49027

PATIENT
  Age: 82 Year
  Sex: Female
  Weight: 52 kg

DRUGS (24)
  1. CALONAL [Concomitant]
     Active Substance: ACETAMINOPHEN
     Indication: SCIATICA
     Dosage: AS REQUIRED
     Route: 048
     Dates: start: 20181222
  2. ALLOID G [Concomitant]
     Active Substance: SODIUM ALGINATE
     Route: 048
     Dates: start: 20190101
  3. LANSOPRAZOLE. [Concomitant]
     Active Substance: LANSOPRAZOLE
     Route: 048
     Dates: start: 20190106
  4. HIRUDOID [Concomitant]
     Active Substance: GLYCOSAMINOGLYCANS
     Dosage: DOSE UNKNOWN, A FEW TIMES A DAY
     Route: 062
     Dates: start: 20190129
  5. RINDERON [Concomitant]
     Dosage: TWO OR THREE TIMES DAILY
     Route: 062
     Dates: start: 20190225
  6. ATORVASTATIN [Concomitant]
     Active Substance: ATORVASTATIN
     Indication: HYPERLIPIDAEMIA
     Route: 048
  7. RESPLEN [Concomitant]
     Active Substance: EPRAZINONE
     Indication: NON-SMALL CELL LUNG CANCER
     Route: 048
     Dates: start: 20181219
  8. HYDROMORPHONE HYDROCHLORIDE. [Concomitant]
     Active Substance: HYDROMORPHONE HYDROCHLORIDE
     Dosage: AS REQUIRED
     Route: 048
     Dates: start: 20190105
  9. TSUMURA RIKKUNSHITO EXTRACT [Concomitant]
     Route: 048
     Dates: start: 20190110
  10. PREDONINE [Concomitant]
     Active Substance: PREDNISOLONE
     Indication: NON-SMALL CELL LUNG CANCER
     Route: 048
     Dates: start: 20190116
  11. IMFINZI [Suspect]
     Active Substance: DURVALUMAB
     Indication: NON-SMALL CELL LUNG CANCER
     Route: 041
     Dates: start: 20190301, end: 20190301
  12. TRAMCET [Concomitant]
     Active Substance: ACETAMINOPHEN\TRAMADOL
     Indication: SCIATICA
     Dosage: DOSE UNKNOWN, AS REQUIRED
     Route: 048
     Dates: start: 20181221
  13. LYRICA [Concomitant]
     Active Substance: PREGABALIN
     Indication: SCIATICA
     Route: 048
     Dates: start: 20181231
  14. MAGNESIUM OXIDE. [Concomitant]
     Active Substance: MAGNESIUM OXIDE
     Indication: NON-SMALL CELL LUNG CANCER
     Route: 048
     Dates: start: 20181222
  15. LUNESTA [Concomitant]
     Active Substance: ESZOPICLONE
     Dosage: AS REQUIRED
     Route: 048
     Dates: start: 20190121
  16. FELBINAC [Concomitant]
     Active Substance: FELBINAC
     Route: 062
     Dates: start: 20190208
  17. DESPA [Concomitant]
     Dosage: DOSE UNKNOWN
     Route: 062
     Dates: start: 20190206
  18. CANDESARTAN. [Concomitant]
     Active Substance: CANDESARTAN
     Indication: HYPERTENSION
     Route: 048
  19. AMLODIPINE [Concomitant]
     Active Substance: AMLODIPINE BESYLATE
     Indication: HYPERTENSION
     Route: 048
  20. RELVAR [Concomitant]
     Active Substance: FLUTICASONE FUROATE\VILANTEROL TRIFENATATE
     Indication: ASTHMA
     Dosage: DOSE UNKNOWN
     Route: 055
     Dates: start: 20181204
  21. SENNOSIDE [Concomitant]
     Active Substance: SENNOSIDES
     Dosage: AS REQUIRED
     Route: 048
     Dates: start: 20181222
  22. LOXOPROFEN [Concomitant]
     Active Substance: LOXOPROFEN
     Indication: SCIATICA
     Route: 048
     Dates: start: 20181227
  23. REBAMIPIDE [Concomitant]
     Active Substance: REBAMIPIDE
     Indication: SCIATICA
     Route: 048
     Dates: start: 20181227
  24. METOCLOPRAMIDE. [Concomitant]
     Active Substance: METOCLOPRAMIDE
     Indication: NON-SMALL CELL LUNG CANCER
     Dosage: AS REQUIRED
     Route: 048
     Dates: start: 20181231

REACTIONS (1)
  - Radiation pneumonitis [Recovering/Resolving]

NARRATIVE: CASE EVENT DATE: 20190315
